FAERS Safety Report 5680036-3 (Version None)
Quarter: 2008Q1

REPORT INFORMATION
  Report Type: 
  Country: None (occurrence: None)
  Receive Date: 20080324
  Receipt Date: 20080312
  Transmission Date: 20080703
  Serious: Yes (Other)
  Sender: FDA-Public Use
  Company Number: GXKR2008DE02486

PATIENT
  Age: 69 Year
  Sex: Male

DRUGS (5)
  1. SIMVAHEXAL (NGX)(SIMVASTATIN) FILM-COATED TABLET, 10MG [Suspect]
     Dosage: 15 MG ORAL, 10 MG, ORAL
     Route: 048
  2. VERAPAMIL [Concomitant]
  3. RAMIPRIL [Concomitant]
  4. ACETYLSALICYLIC ACID SRT [Concomitant]
  5. PLAVIX [Concomitant]

REACTIONS (2)
  - ARRHYTHMIA [None]
  - ATRIAL FIBRILLATION [None]
